FAERS Safety Report 19168735 (Version 1)
Quarter: 2021Q2

REPORT INFORMATION
  Report Type: Spontaneous
  Country: NO (occurrence: NO)
  Receive Date: 20210422
  Receipt Date: 20210422
  Transmission Date: 20210717
  Serious: Yes (Other)
  Sender: FDA-Public Use
  Company Number: NO-TEVA-2021-NO-1901991

PATIENT
  Age: 41 Year
  Sex: Female
  Weight: 76 kg

DRUGS (6)
  1. VITAMIN D [Concomitant]
     Active Substance: VITAMIN D NOS
  2. VITAMINERAL [Concomitant]
  3. VITAMIN B [Concomitant]
     Active Substance: VITAMIN B
  4. PARACET [PARACETAMOL] [Concomitant]
     Active Substance: ACETAMINOPHEN
     Dosage: 500 MG ? 1 G SPORADICALLY
  5. AJOVY [Suspect]
     Active Substance: FREMANEZUMAB-VFRM
     Indication: MIGRAINE PROPHYLAXIS
     Dates: start: 202005, end: 202008
  6. MAGNESIUM [Concomitant]
     Active Substance: MAGNESIUM
     Dosage: 200 MG

REACTIONS (8)
  - Palpitations [Recovered/Resolved]
  - Fatigue [Recovered/Resolved]
  - Swelling face [Unknown]
  - Mental disorder [Unknown]
  - Weight increased [Recovered/Resolved]
  - Heart rate increased [Recovered/Resolved]
  - Suicidal ideation [Unknown]
  - Major depression [Recovered/Resolved]

NARRATIVE: CASE EVENT DATE: 202006
